FAERS Safety Report 25596990 (Version 2)
Quarter: 2025Q3

REPORT INFORMATION
  Report Type: Spontaneous
  Country: US (occurrence: US)
  Receive Date: 20250723
  Receipt Date: 20250730
  Transmission Date: 20251021
  Serious: No
  Sender: ROCHE
  Company Number: US-ROCHE-10000342792

PATIENT
  Sex: Female

DRUGS (3)
  1. XOLAIR PFS [Suspect]
     Active Substance: OMALIZUMAB
     Indication: Asthma
     Dosage: STRENGTH: 150 MG/ ML AND 75 MG/ ML?INJECT 1 SYRINGE UNDER THE SKIN EVERY 2 WEEKS. ?TOTAL DOSE =225MG
     Route: 058
     Dates: start: 202009
  2. XOLAIR PFS [Suspect]
     Active Substance: OMALIZUMAB
  3. ZAVZPRET [Suspect]
     Active Substance: ZAVEGEPANT HYDROCHLORIDE
     Indication: Product used for unknown indication
     Route: 065

REACTIONS (2)
  - Erythema [Unknown]
  - Pruritus [Unknown]
